FAERS Safety Report 5972968-3 (Version None)
Quarter: 2008Q4

REPORT INFORMATION
  Report Type: 
  Country: None (occurrence: None)
  Receive Date: 20081201
  Receipt Date: 20081124
  Transmission Date: 20090506
  Serious: Yes (Life-Threatening, Other)
  Sender: FDA-Public Use
  Company Number: PHHY2008DE23116

PATIENT
  Sex: Female
  Weight: 83.6 kg

DRUGS (8)
  1. ACLASTA [Suspect]
     Indication: OSTEOPOROSIS
     Dosage: 5 MG, ONCE/SINGLE
     Dates: start: 20080919, end: 20080919
  2. INSULIN [Concomitant]
     Indication: DIABETES MELLITUS
     Dosage: UNK
  3. CLOPIDOGREL [Concomitant]
     Indication: CORONARY ARTERY STENOSIS
     Dosage: 75 MG, QD
     Route: 048
     Dates: start: 20040101
  4. TARGIN [Concomitant]
     Indication: PAIN
     Dosage: 10 MG, BID
     Route: 048
     Dates: start: 20060101
  5. RAMIPRIL [Concomitant]
     Indication: HYPERTENSION
     Dosage: 5 MG, BID
     Route: 048
     Dates: start: 20060101
  6. MONOXIDIN [Concomitant]
     Indication: HYPERTENSION
     Dosage: 0.2 MG, BID
     Route: 048
     Dates: start: 20040101
  7. LYRICA [Concomitant]
     Indication: NEURALGIA
     Dosage: 150 MG, UNK
     Route: 048
     Dates: start: 20060101
  8. LYRICA [Concomitant]
     Dosage: 300 MG, UNK
     Route: 048
     Dates: start: 20060101

REACTIONS (7)
  - BALANCE DISORDER [None]
  - DIZZINESS [None]
  - EYE DISORDER [None]
  - HALLUCINATION [None]
  - PYREXIA [None]
  - RESPIRATORY RATE DECREASED [None]
  - SPEECH DISORDER [None]
